FAERS Safety Report 4553485-4 (Version None)
Quarter: 2005Q1

REPORT INFORMATION
  Report Type: 
  Country: None (occurrence: None)
  Receive Date: 20050113
  Receipt Date: 20050107
  Transmission Date: 20050727
  Serious: Yes (Hospitalization)
  Sender: FDA-Public Use
  Company Number: D0039102A

PATIENT
  Age: 29 Year
  Sex: Male

DRUGS (1)
  1. ZYBAN [Suspect]
     Indication: SMOKING CESSATION THERAPY
     Dosage: ORAL
     Route: 048

REACTIONS (8)
  - DISTURBANCE IN ATTENTION [None]
  - DRUG ABUSER [None]
  - HALLUCINATIONS, MIXED [None]
  - INSOMNIA [None]
  - PSYCHOTIC DISORDER [None]
  - SCHIZOPHRENIFORM DISORDER [None]
  - SUICIDAL IDEATION [None]
  - VISION BLURRED [None]
